FAERS Safety Report 6567794-0 (Version None)
Quarter: 2010Q1

REPORT INFORMATION
  Report Type: 
  Country: None (occurrence: None)
  Receive Date: 20100203
  Receipt Date: 20100126
  Transmission Date: 20100710
  Serious: Yes (Hospitalization)
  Sender: FDA-Public Use
  Company Number: CA-ASTRAZENECA-2010SE04052

PATIENT
  Sex: Male

DRUGS (1)
  1. SEROQUEL [Suspect]
     Indication: DEMENTIA
     Route: 048
     Dates: start: 20090101

REACTIONS (6)
  - ACCIDENTAL OVERDOSE [None]
  - COMMUNICATION DISORDER [None]
  - PERICARDIAL EFFUSION [None]
  - PNEUMONIA [None]
  - SOMNOLENCE [None]
  - TREMOR [None]
